FAERS Safety Report 12094254 (Version 1)
Quarter: 2016Q1

REPORT INFORMATION
  Report Type: Spontaneous
  Country: AR (occurrence: AR)
  Receive Date: 20160219
  Receipt Date: 20160219
  Transmission Date: 20160526
  Serious: Yes (Other)
  Sender: FDA-Public Use
  Company Number: AR-BRISTOL-MYERS SQUIBB COMPANY-BMS-2016-012198

PATIENT
  Age: 70 Year
  Sex: Male

DRUGS (1)
  1. ELIQUIS [Suspect]
     Active Substance: APIXABAN
     Indication: PRODUCT USED FOR UNKNOWN INDICATION
     Dosage: 5 MG, BID
     Route: 065

REACTIONS (4)
  - Heart rate irregular [Recovered/Resolved]
  - Atrial fibrillation [Recovered/Resolved]
  - Heart rate increased [Recovered/Resolved]
  - Cardioversion [Unknown]

NARRATIVE: CASE EVENT DATE: 20160201
